APPROVED DRUG PRODUCT: COMPRO
Active Ingredient: PROCHLORPERAZINE
Strength: 25MG
Dosage Form/Route: SUPPOSITORY;RECTAL
Application: A040246 | Product #001 | TE Code: AB
Applicant: PADAGIS US LLC
Approved: Jun 28, 2000 | RLD: No | RS: No | Type: RX